FAERS Safety Report 20859525 (Version 6)
Quarter: 2023Q4

REPORT INFORMATION
  Report Type: Spontaneous
  Country: US (occurrence: US)
  Receive Date: 20220523
  Receipt Date: 20231110
  Transmission Date: 20240110
  Serious: No
  Sender: FDA-Public Use
  Company Number: US-BRISTOL-MYERS SQUIBB COMPANY-2022-043303

PATIENT
  Age: 45 Year
  Sex: Female

DRUGS (1)
  1. ORENCIA [Suspect]
     Active Substance: ABATACEPT
     Indication: Rheumatoid arthritis
     Dosage: CLICKJECT 4ML
     Route: 058
     Dates: start: 202307

REACTIONS (6)
  - Joint swelling [Unknown]
  - Urinary tract infection [Unknown]
  - Arthralgia [Unknown]
  - Pain [Unknown]
  - Gait disturbance [Unknown]
  - General physical health deterioration [Unknown]
